FAERS Safety Report 10912734 (Version 1)
Quarter: 2015Q1

REPORT INFORMATION
  Report Type: Spontaneous
  Country: US (occurrence: None)
  Receive Date: 20150310
  Receipt Date: 20150310
  Transmission Date: 20150721
  Serious: Yes (Life-Threatening, Hospitalization)
  Sender: FDA-Public Use
  Company Number: None

PATIENT
  Age: 49 Year
  Sex: Female
  Weight: 63 kg

DRUGS (2)
  1. ZESTORETIC [Suspect]
     Active Substance: HYDROCHLOROTHIAZIDE\LISINOPRIL
     Indication: HYPERTENSION
     Dosage: 1 TABLET
     Route: 048
     Dates: start: 20130225, end: 20150305
  2. AMOXIL [Concomitant]
     Active Substance: AMOXICILLIN

REACTIONS (4)
  - Swollen tongue [None]
  - Palatal swelling [None]
  - Tooth abscess [None]
  - Pharyngeal oedema [None]

NARRATIVE: CASE EVENT DATE: 20150306
